FAERS Safety Report 22907690 (Version 2)
Quarter: 2023Q4

REPORT INFORMATION
  Report Type: Spontaneous
  Country: BR (occurrence: BR)
  Receive Date: 20230905
  Receipt Date: 20231007
  Transmission Date: 20240109
  Serious: Yes (Life-Threatening, Other)
  Sender: FDA-Public Use
  Company Number: BR-AMGEN-BRASP2023148935

PATIENT
  Age: 68 Year
  Sex: Male
  Weight: 81.7 kg

DRUGS (19)
  1. BLINCYTO [Suspect]
     Active Substance: BLINATUMOMAB
     Indication: Acute lymphocytic leukaemia
     Dosage: 10.37 MICROGRAM
     Route: 065
     Dates: start: 20230702, end: 202307
  2. BLINCYTO [Suspect]
     Active Substance: BLINATUMOMAB
     Dosage: 32.5 MICROGRAM
     Route: 065
     Dates: start: 20230709, end: 20230713
  3. BLINCYTO [Suspect]
     Active Substance: BLINATUMOMAB
     Dosage: 10.37 MICROGRAM
     Route: 065
     Dates: start: 20230716, end: 20230728
  4. NPH INSULIN [Concomitant]
     Active Substance: INSULIN BEEF
     Dosage: UNK UNK, BID
  5. INSULIN HUMAN [Concomitant]
     Active Substance: INSULIN HUMAN
     Dosage: 10 INTERNATIONAL UNIT, BID
  6. LOSARTAN [Concomitant]
     Active Substance: LOSARTAN
     Indication: Hypertension
     Dosage: 50 MILLIGRAM
  7. DUTASTERIDE [Concomitant]
     Active Substance: DUTASTERIDE
     Dosage: 0.5 MILLIGRAM
  8. TAMSULOSIN [Concomitant]
     Active Substance: TAMSULOSIN
     Dosage: 0.4 MILLIGRAM
  9. DAPAGLIFLOZIN [Concomitant]
     Active Substance: DAPAGLIFLOZIN
  10. BROMOPRIDE [Concomitant]
     Active Substance: BROMOPRIDE
     Indication: Nausea
     Dosage: 10 MILLIGRAM
  11. SULFAMETHOXAZOLE AND TRIMETHOPRIM [Concomitant]
     Active Substance: SULFAMETHOXAZOLE\TRIMETHOPRIM
     Indication: Prophylaxis
  12. ACYCLOVIR [Concomitant]
     Active Substance: ACYCLOVIR
     Indication: Prophylaxis
     Dosage: 400 MILLIGRAM
  13. DEXCHLORPHENIRAMINE [Concomitant]
     Active Substance: DEXCHLORPHENIRAMINE
     Indication: Hypersensitivity
     Dosage: 2 MILLIGRAM
  14. OMEPRAZOLE [Concomitant]
     Active Substance: OMEPRAZOLE
     Dosage: 40 MILLIGRAM, QD
  15. ENOXAPARIN [Concomitant]
     Active Substance: ENOXAPARIN
     Indication: Prophylaxis
     Dosage: 40 MILLIGRAM, QD
  16. DASATINIB [Concomitant]
     Active Substance: DASATINIB
     Dosage: 100 MILLIGRAM, QD
  17. DUTASTERIDE\TAMSULOSIN HYDROCHLORIDE [Concomitant]
     Active Substance: DUTASTERIDE\TAMSULOSIN HYDROCHLORIDE
     Indication: Benign prostatic hyperplasia
  18. QUETIAPINE [Concomitant]
     Active Substance: QUETIAPINE
  19. DEXAMETHASONE [Concomitant]
     Active Substance: DEXAMETHASONE

REACTIONS (7)
  - Neurotoxicity [Unknown]
  - Thrombocytopenia [Unknown]
  - Confusional state [Recovered/Resolved]
  - Disturbance in attention [Unknown]
  - Bradyphrenia [Unknown]
  - Aggression [Unknown]
  - Staring [Unknown]

NARRATIVE: CASE EVENT DATE: 20230708
